FAERS Safety Report 5819067-9 (Version None)
Quarter: 2008Q3

REPORT INFORMATION
  Report Type: 
  Country: None (occurrence: None)
  Receive Date: 20080721
  Receipt Date: 20080721
  Transmission Date: 20090109
  Serious: Yes (Hospitalization)
  Sender: FDA-Public Use
  Company Number: None

PATIENT
  Age: 31 Year
  Sex: Male
  Weight: 79.8331 kg

DRUGS (3)
  1. ULTRAM ER [Suspect]
     Indication: ACCIDENT AT WORK
     Dosage: 300MGS ONCE DAILY PO
     Route: 048
     Dates: start: 20080510, end: 20080715
  2. ULTRAM ER [Suspect]
     Indication: BACK INJURY
     Dosage: 300MGS ONCE DAILY PO
     Route: 048
     Dates: start: 20080510, end: 20080715
  3. ULTRAM ER [Suspect]
     Dosage: 200MGS ONCE DAILY PO
     Route: 048

REACTIONS (1)
  - CONVULSION [None]
